FAERS Safety Report 25542588 (Version 1)
Quarter: 2025Q3

REPORT INFORMATION
  Report Type: Spontaneous
  Country: JP (occurrence: JP)
  Receive Date: 20250711
  Receipt Date: 20250711
  Transmission Date: 20251020
  Serious: Yes (Death)
  Sender: Unknown Manufacturer
  Company Number: JP-MTPC-MTPC2025-0011789

PATIENT
  Age: 68 Year
  Sex: Female

DRUGS (1)
  1. EDARAVONE [Suspect]
     Active Substance: EDARAVONE
     Indication: Amyotrophic lateral sclerosis
     Route: 041
     Dates: end: 20250702

REACTIONS (2)
  - Poor venous access [Fatal]
  - Dyspnoea [Fatal]
